FAERS Safety Report 15649957 (Version 1)
Quarter: 2018Q4

REPORT INFORMATION
  Report Type: Spontaneous
  Country: US (occurrence: US)
  Receive Date: 20181123
  Receipt Date: 20181123
  Transmission Date: 20190205
  Serious: Yes (Hospitalization)
  Sender: FDA-Public Use
  Company Number: US-009507513-1811USA005824

PATIENT
  Age: 54 Year
  Sex: Female

DRUGS (2)
  1. METOPROLOL. [Concomitant]
     Active Substance: METOPROLOL
  2. ENTEREG [Suspect]
     Active Substance: ALVIMOPAN
     Indication: CONSTIPATION
     Dosage: 12 MG, TWICE DAILY
     Route: 048
     Dates: start: 20181108

REACTIONS (4)
  - Constipation [Recovered/Resolved]
  - Product supply issue [Recovered/Resolved]
  - Adverse event [Unknown]
  - Product dose omission [Unknown]

NARRATIVE: CASE EVENT DATE: 201811
